FAERS Safety Report 6121559-2 (Version None)
Quarter: 2009Q1

REPORT INFORMATION
  Report Type: 
  Country: None (occurrence: None)
  Receive Date: 20090317
  Receipt Date: 20090313
  Transmission Date: 20090719
  Serious: No
  Sender: FDA-Public Use
  Company Number: US-JNJFOC-20090303754

PATIENT
  Sex: Female
  Weight: 56.7 kg

DRUGS (3)
  1. FENTANYL TRANSDERMAL SYSTEM [Suspect]
     Indication: BACK PAIN
     Dosage: 50 UG/HR PLUS 75 UG/HR
     Route: 062
  2. DIAZEPAM [Concomitant]
     Indication: SLEEP DISORDER THERAPY
     Dosage: AT BEDTIME
     Route: 048
  3. NORCO [Concomitant]
     Indication: PAIN
     Dosage: 1 TO 2 TABLETS AS NEEDED
     Route: 048

REACTIONS (4)
  - BACK DISORDER [None]
  - DEVICE LEAKAGE [None]
  - DYSARTHRIA [None]
  - TREATMENT NONCOMPLIANCE [None]
